FAERS Safety Report 9459626 (Version 1)
Quarter: 2013Q3

REPORT INFORMATION
  Report Type: Spontaneous
  Country: US (occurrence: US)
  Receive Date: 20130815
  Receipt Date: 20130815
  Transmission Date: 20140515
  Serious: No
  Sender: FDA-Public Use
  Company Number: US-COVIDIEN/TYCO HEALTHCARE/MALLINCKRODT-T201303631

PATIENT
  Sex: Male

DRUGS (2)
  1. FENTANYL TRANSDERMAL SYSTEM [Suspect]
     Indication: PRODUCT USED FOR UNKNOWN INDICATION
     Dosage: 50 UG/HR, Q72H
     Route: 062
     Dates: start: 201305, end: 201306
  2. FENTANYL TRANSDERMAL SYSTEM [Suspect]
     Dosage: TWO 50 MCG/HR PATCHES
     Route: 062

REACTIONS (2)
  - Extra dose administered [Unknown]
  - Drug ineffective [Unknown]
